FAERS Safety Report 16136273 (Version 1)
Quarter: 2019Q1

REPORT INFORMATION
  Report Type: Report from Study
  Country: CA (occurrence: CA)
  Receive Date: 20190329
  Receipt Date: 20190329
  Transmission Date: 20190418
  Serious: Yes (Other)
  Sender: FDA-Public Use
  Company Number: CA-BIOGEN-2019BI00683435

PATIENT
  Age: 45 Year
  Sex: Female

DRUGS (1)
  1. TYSABRI [Suspect]
     Active Substance: NATALIZUMAB
     Indication: MULTIPLE SCLEROSIS
     Route: 050
     Dates: start: 20131120

REACTIONS (7)
  - Fungal oesophagitis [Unknown]
  - Oral fungal infection [Unknown]
  - Bronchitis [Not Recovered/Not Resolved]
  - Hypoaesthesia [Unknown]
  - Sinusitis fungal [Unknown]
  - Weight decreased [Not Recovered/Not Resolved]
  - Asthmatic crisis [Not Recovered/Not Resolved]

NARRATIVE: CASE EVENT DATE: 20181223
